FAERS Safety Report 4714966-3 (Version None)
Quarter: 2005Q3

REPORT INFORMATION
  Report Type: 
  Country: None (occurrence: None)
  Receive Date: 20050715
  Receipt Date: 20050705
  Transmission Date: 20060218
  Serious: Yes (Death)
  Sender: FDA-Public Use
  Company Number: JP-JNJFOC-20050701493

PATIENT
  Sex: Female

DRUGS (12)
  1. FENTANYL [Suspect]
     Route: 062
     Dates: start: 20050524, end: 20050602
  2. FENTANYL [Suspect]
     Indication: CANCER PAIN
     Route: 062
     Dates: start: 20050524, end: 20050602
  3. DUROTEP [Suspect]
     Route: 062
     Dates: start: 20050602, end: 20050620
  4. DUROTEP [Suspect]
     Indication: CANCER PAIN
     Route: 062
     Dates: start: 20050602, end: 20050620
  5. DEXAMETHASONE [Concomitant]
     Indication: PYREXIA
     Route: 048
     Dates: start: 20050613, end: 20050625
  6. MORPHINE SULFATE [Concomitant]
     Indication: CANCER PAIN
     Route: 048
     Dates: start: 20050623, end: 20050625
  7. ETIZOLAM [Concomitant]
     Indication: DEPRESSION
     Route: 048
     Dates: start: 20050623, end: 20050625
  8. PAROXETINE HCL [Concomitant]
     Indication: DEPRESSION
     Route: 048
     Dates: start: 20050623, end: 20050625
  9. DIAZEPAM [Concomitant]
     Indication: CONVULSION
     Dates: start: 20050627, end: 20050627
  10. METOCLOPRAMIDE [Concomitant]
     Indication: GASTROINTESTINAL MOTILITY DISORDER
     Route: 048
     Dates: end: 20050625
  11. LAFUTIDINE [Concomitant]
     Indication: HYPERCHLORHYDRIA
     Route: 048
     Dates: end: 20050625
  12. SENNOSIDE [Concomitant]
     Indication: CONSTIPATION
     Route: 048
     Dates: end: 20050625

REACTIONS (2)
  - GASTRIC CANCER [None]
  - MALIGNANT NEOPLASM PROGRESSION [None]
